FAERS Safety Report 18103711 (Version 2)
Quarter: 2020Q3

REPORT INFORMATION
  Report Type: Spontaneous
  Country: US (occurrence: US)
  Receive Date: 20200803
  Receipt Date: 20200813
  Transmission Date: 20201103
  Serious: Yes (Hospitalization, Other)
  Sender: FDA-Public Use
  Company Number: US-PFIZER INC-2020291397

PATIENT
  Age: 69 Year
  Sex: Female

DRUGS (9)
  1. ALDACTONE [Suspect]
     Active Substance: SPIRONOLACTONE
     Indication: HYPERTENSION
     Dosage: 25 MG, DAILY
     Route: 048
     Dates: start: 202006
  2. SILDENAFIL CITRATE. [Suspect]
     Active Substance: SILDENAFIL CITRATE
     Indication: PULMONARY ARTERIAL HYPERTENSION
     Dosage: 600 MG, 2X/DAY
     Route: 048
     Dates: start: 202006
  3. BUMEX [Suspect]
     Active Substance: BUMETANIDE
     Indication: PULMONARY FIBROSIS
  4. OFEV [Suspect]
     Active Substance: NINTEDANIB
     Indication: PULMONARY FIBROSIS
     Dosage: 100 MG, 2X/DAY
     Route: 048
     Dates: start: 202006
  5. PROTONIX [Concomitant]
     Active Substance: PANTOPRAZOLE SODIUM
     Indication: BLOOD PRESSURE ABNORMAL
     Dosage: UNK
  6. BUMEX [Suspect]
     Active Substance: BUMETANIDE
     Indication: DIURETIC THERAPY
     Dosage: 1 MG, 2X/DAY
     Route: 048
     Dates: start: 202006
  7. PEPCID [Concomitant]
     Active Substance: FAMOTIDINE
     Indication: BLOOD PRESSURE ABNORMAL
     Dosage: UNK
  8. BUMEX [Suspect]
     Active Substance: BUMETANIDE
     Indication: PULMONARY HYPERTENSION
  9. ATENOLOL. [Suspect]
     Active Substance: ATENOLOL
     Indication: HYPERTENSION
     Dosage: 25 MG, 1X/DAY
     Route: 048

REACTIONS (1)
  - Feeling abnormal [Not Recovered/Not Resolved]

NARRATIVE: CASE EVENT DATE: 202006
